FAERS Safety Report 8608379 (Version 3)
Quarter: 2012Q4

REPORT INFORMATION
  Report Type: Report from Study
  Country: FR (occurrence: FR)
  Receive Date: 20120611
  Receipt Date: 20120926
  Transmission Date: 20130627
  Serious: Yes (Life-Threatening, Hospitalization)
  Sender: FDA-Public Use
  Company Number: FR-ROCHE-1062958

PATIENT
  Age: 69 Year
  Sex: Male

DRUGS (21)
  1. CELLCEPT [Suspect]
     Indication: TRANSPLANT REJECTION
     Route: 002
     Dates: start: 20120321, end: 20120614
  2. CELLCEPT [Suspect]
     Route: 065
  3. CYCLOSPORINE [Suspect]
     Indication: TRANSPLANT REJECTION
     Route: 002
     Dates: start: 20120321, end: 20120612
  4. CYCLOSPORINE [Suspect]
     Route: 065
  5. PREDNISOLONE [Suspect]
     Indication: TRANSPLANT REJECTION
     Route: 002
     Dates: start: 20120327, end: 20120611
  6. CALCIPARINE [Suspect]
     Indication: PRODUCT USED FOR UNKNOWN INDICATION
     Route: 065
     Dates: start: 20120405, end: 20120416
  7. CALCIPARINE [Suspect]
     Route: 065
  8. LASIX [Concomitant]
  9. ESIDREX [Concomitant]
  10. NEO-MERCAZOLE [Concomitant]
  11. ROVALCYTE [Concomitant]
  12. BACTRIM FORTE [Concomitant]
     Route: 065
  13. AMLOR [Concomitant]
  14. KARDEGIC [Concomitant]
  15. CRESTOR [Concomitant]
  16. INEXIUM [Concomitant]
  17. CORDARONE [Concomitant]
  18. INSULATARD [Concomitant]
     Dosage: 14 IU in morning,14 IU at mid day and 12 IU in evening
     Route: 065
  19. CERIS [Concomitant]
  20. TEMERIT [Concomitant]
  21. HYDROCORTISONE [Concomitant]
     Route: 065

REACTIONS (7)
  - Heparin-induced thrombocytopenia [Recovered/Resolved]
  - Muscle haemorrhage [Recovering/Resolving]
  - Anaemia [Recovered/Resolved]
  - Transfusion [Recovered/Resolved]
  - Blood creatinine increased [Recovered/Resolved]
  - Overdose [Recovered/Resolved]
  - Haemolysis [Recovered/Resolved]
